FAERS Safety Report 8140902-6 (Version None)
Quarter: 2012Q1

REPORT INFORMATION
  Report Type: 
  Country: None (occurrence: None)
  Receive Date: 20120216
  Receipt Date: 20120207
  Transmission Date: 20120608
  Serious: Yes (Hospitalization, Other)
  Sender: FDA-Public Use
  Company Number: IT-JNJFOC-20120110390

PATIENT
  Age: 46 Year
  Sex: Male

DRUGS (4)
  1. SYMBICORT [Concomitant]
     Indication: ASTHMA
     Route: 055
     Dates: start: 20000101, end: 20120102
  2. REMICADE [Suspect]
     Route: 042
     Dates: start: 20030101
  3. REMICADE [Suspect]
     Indication: SPONDYLOARTHROPATHY
     Route: 042
     Dates: start: 20030310, end: 20090401
  4. REMICADE [Suspect]
     Route: 042
     Dates: start: 20090501

REACTIONS (4)
  - PERICARDITIS [None]
  - HYPERPYREXIA [None]
  - PNEUMONIA [None]
  - CHEST PAIN [None]
